FAERS Safety Report 24394009 (Version 1)
Quarter: 2024Q4

REPORT INFORMATION
  Report Type: Spontaneous
  Country: CN (occurrence: CN)
  Receive Date: 20241003
  Receipt Date: 20241003
  Transmission Date: 20250114
  Serious: Yes (Hospitalization)
  Sender: ABBVIE
  Company Number: CN-ABBVIE-5945717

PATIENT
  Age: 56 Year
  Sex: Female
  Weight: 47 kg

DRUGS (2)
  1. VENETOCLAX [Suspect]
     Active Substance: VENETOCLAX
     Indication: Symptomatic treatment
     Dosage: 0.1 GRAM
     Route: 048
     Dates: start: 20240910, end: 20240913
  2. CYTARABINE [Suspect]
     Active Substance: CYTARABINE
     Indication: Symptomatic treatment
     Dosage: 3 GRAM
     Route: 041
     Dates: start: 20240910, end: 20240913

REACTIONS (1)
  - Myelosuppression [Not Recovered/Not Resolved]

NARRATIVE: CASE EVENT DATE: 20240919
